FAERS Safety Report 9438379 (Version 1)
Quarter: 2013Q3

REPORT INFORMATION
  Report Type: Spontaneous
  Country: US (occurrence: US)
  Receive Date: 20130802
  Receipt Date: 20130802
  Transmission Date: 20140515
  Serious: Yes (Other)
  Sender: FDA-Public Use
  Company Number: US-BRISTOL-MYERS SQUIBB COMPANY-17208885

PATIENT
  Age: 84 Year
  Sex: Female

DRUGS (6)
  1. COUMADIN [Suspect]
     Indication: ANTICOAGULANT THERAPY
     Route: 048
     Dates: start: 2004
  2. ECOTRIN [Suspect]
     Indication: ANALGESIC THERAPY
     Route: 048
     Dates: start: 2004, end: 20121120
  3. TOPROL [Concomitant]
  4. SIMVASTATIN [Concomitant]
  5. ARIMIDEX [Concomitant]
  6. SYNTHROID [Concomitant]

REACTIONS (1)
  - Epistaxis [Unknown]
